FAERS Safety Report 4369751-1 (Version None)
Quarter: 2004Q2

REPORT INFORMATION
  Report Type: 
  Country: None (occurrence: None)
  Receive Date: 20040525
  Receipt Date: 20040513
  Transmission Date: 20050107
  Serious: Yes (Hospitalization)
  Sender: FDA-Public Use
  Company Number: DALBA-10171

PATIENT
  Age: 57 Year
  Sex: Female

DRUGS (1)
  1. CEFAZOLIN [Suspect]
     Indication: POSTOPERATIVE INFECTION
     Dosage: 1500 MG IV
     Route: 042
     Dates: start: 20040423, end: 20040428

REACTIONS (5)
  - GASTRITIS EROSIVE [None]
  - HYPERTHYROIDISM [None]
  - HYPOKALAEMIA [None]
  - HYPOMAGNESAEMIA [None]
  - PANCREATITIS ACUTE [None]
